FAERS Safety Report 6336158-7 (Version None)
Quarter: 2009Q3

REPORT INFORMATION
  Report Type: 
  Country: None (occurrence: None)
  Receive Date: 20090828
  Receipt Date: 20090818
  Transmission Date: 20100115
  Serious: Yes (Other)
  Sender: FDA-Public Use
  Company Number: ADR13962009

PATIENT
  Age: 50 Year
  Sex: Female

DRUGS (6)
  1. CITALOPRAM HYDROBROMIDE [Suspect]
     Indication: ANXIETY
     Dosage: 20MG ORAL
     Route: 048
     Dates: start: 20071214, end: 20080118
  2. ATENOLOL [Concomitant]
  3. DOTHIEPIN HYDROCHLORIDE [Concomitant]
  4. INDAPAMIDE [Concomitant]
  5. NOVORAPID [Concomitant]
  6. RAMIPRIL [Concomitant]

REACTIONS (2)
  - DIABETES MELLITUS [None]
  - DIABETES MELLITUS INADEQUATE CONTROL [None]
